FAERS Safety Report 11743024 (Version 3)
Quarter: 2016Q4

REPORT INFORMATION
  Report Type: Spontaneous
  Country: US (occurrence: US)
  Receive Date: 20151116
  Receipt Date: 20161017
  Transmission Date: 20170206
  Serious: No
  Sender: FDA-Public Use
  Company Number: US-ACTELION PHARMACEUTICALS US, INC.-A-US2015-111259

PATIENT
  Age: 42 Year
  Sex: Female

DRUGS (4)
  1. TRACLEER [Suspect]
     Active Substance: BOSENTAN
     Indication: PULMONARY HYPERTENSION
     Dosage: 125 MG, BID
     Route: 048
     Dates: start: 20130802
  2. REMODULIN [Concomitant]
     Active Substance: TREPROSTINIL
  3. ASPIRIN. [Concomitant]
     Active Substance: ASPIRIN
  4. ADCIRCA [Concomitant]
     Active Substance: TADALAFIL

REACTIONS (11)
  - Catheter site pain [Unknown]
  - Catheter site paraesthesia [Unknown]
  - Cellulitis [Recovered/Resolved]
  - Catheter site discharge [Recovered/Resolved]
  - Catheter site pruritus [Recovering/Resolving]
  - Condition aggravated [Unknown]
  - Catheter site haemorrhage [Unknown]
  - Catheter site swelling [Unknown]
  - Neuralgia [Unknown]
  - Catheter site warmth [Unknown]
  - Catheter site infection [Recovered/Resolved]
